FAERS Safety Report 11791575 (Version 1)
Quarter: 2015Q4

REPORT INFORMATION
  Report Type: Spontaneous
  Country: DE (occurrence: DE)
  Receive Date: 20151201
  Receipt Date: 20151201
  Transmission Date: 20160305
  Serious: Yes (Other)
  Sender: FDA-Public Use
  Company Number: DE-TEVA-611122GER

PATIENT
  Sex: Male

DRUGS (1)
  1. SALBUTAMOL-RATIOPHARM N DOSIERAEROSOL [Suspect]
     Active Substance: ALBUTEROL
     Route: 055

REACTIONS (2)
  - Choking [Unknown]
  - Respiratory distress [Recovered/Resolved]
